FAERS Safety Report 8296099-5 (Version None)
Quarter: 2012Q2

REPORT INFORMATION
  Report Type: 
  Country: None (occurrence: None)
  Receive Date: 20120418
  Receipt Date: 20120413
  Transmission Date: 20120825
  Serious: Yes (Disabling, Other)
  Sender: FDA-Public Use
  Company Number: US-GLAXOSMITHKLINE-A0972191A

PATIENT
  Age: 32 Year
  Sex: Female

DRUGS (2)
  1. LAMICTAL [Suspect]
     Indication: BIPOLAR I DISORDER
     Dosage: 300MG PER DAY
     Route: 048
     Dates: start: 20040401, end: 20120402
  2. AMBIEN [Concomitant]

REACTIONS (6)
  - RASH PRURITIC [None]
  - PRODUCT QUALITY ISSUE [None]
  - ERYTHEMA [None]
  - SPIDER NAEVUS [None]
  - RASH VESICULAR [None]
  - RASH GENERALISED [None]
